FAERS Safety Report 6055653-1 (Version None)
Quarter: 2009Q1

REPORT INFORMATION
  Report Type: 
  Country: None (occurrence: None)
  Receive Date: 20090123
  Receipt Date: 20090108
  Transmission Date: 20090719
  Serious: Yes (Death)
  Sender: FDA-Public Use
  Company Number: 090115-0000044

PATIENT
  Age: 18 Year
  Sex: Male

DRUGS (3)
  1. DESOXYN [Suspect]
     Indication: DRUG USE FOR UNKNOWN INDICATION
     Dosage: ; PO
     Route: 048
  2. BUPROPION HCL [Suspect]
     Indication: DRUG USE FOR UNKNOWN INDICATION
     Dosage: ; PO
     Route: 048
  3. ATOMOXETINE HCL [Suspect]
     Indication: DRUG USE FOR UNKNOWN INDICATION

REACTIONS (1)
  - COMPLETED SUICIDE [None]
